FAERS Safety Report 13598496 (Version 2)
Quarter: 2017Q4

REPORT INFORMATION
  Report Type: Spontaneous
  Country: CH (occurrence: CH)
  Receive Date: 20170531
  Receipt Date: 20171221
  Transmission Date: 20180320
  Serious: Yes (Other)
  Sender: FDA-Public Use
  Company Number: CH-LPDUSPRD-20170655

PATIENT
  Age: 25 Year
  Sex: Female

DRUGS (5)
  1. MALTOFER FOL [Suspect]
     Active Substance: FOLIC ACID\IRON POLYMALTOSE
     Dosage: ONCE DAILY
     Route: 048
  2. VENTOLIN DOSIER [Concomitant]
     Dosage: 0.1 MG IN RESERVE
     Route: 055
  3. AVAMYS [Concomitant]
     Active Substance: FLUTICASONE FUROATE
     Dosage: 27.5 MCG IN EACH NOSTRIL/DAY
     Route: 045
  4. SYMBICORT [Concomitant]
     Active Substance: BUDESONIDE\FORMOTEROL FUMARATE DIHYDRATE
     Dosage: IN RESERVE
     Route: 055
  5. FERINJECT [Suspect]
     Active Substance: FERRIC CARBOXYMALTOSE
     Dosage: 500 MG
     Route: 041
     Dates: start: 20170421, end: 20170421

REACTIONS (3)
  - Contraindicated product administered [Unknown]
  - Exposure during pregnancy [Unknown]
  - No adverse event [Recovered/Resolved]

NARRATIVE: CASE EVENT DATE: 20170421
